APPROVED DRUG PRODUCT: VIGABATRIN
Active Ingredient: VIGABATRIN
Strength: 500MG
Dosage Form/Route: TABLET;ORAL
Application: A213104 | Product #001 | TE Code: AB
Applicant: HIKMA PHARMACEUTICALS USA INC
Approved: Aug 29, 2022 | RLD: No | RS: No | Type: RX